FAERS Safety Report 10349473 (Version 1)
Quarter: 2014Q3

REPORT INFORMATION
  Report Type: Spontaneous
  Country: US (occurrence: None)
  Receive Date: 20140728
  Receipt Date: 20140728
  Transmission Date: 20150326
  Serious: Yes (Hospitalization)
  Sender: FDA-Public Use
  Company Number: None

PATIENT
  Age: 65 Year
  Sex: Male
  Weight: 74 kg

DRUGS (1)
  1. SUNITINIB MALATE [Suspect]
     Active Substance: SUNITINIB MALATE
     Dosage: PATIENT TOOK HIS PILL ON 11/18/2013 BUT VOMITTED THE PILL OUT. HE HAS NOT TAKEN ANY SINCE.
     Dates: end: 20131122

REACTIONS (6)
  - Vomiting [None]
  - Blood pressure increased [None]
  - Pyrexia [None]
  - Diarrhoea [None]
  - Chills [None]
  - Bacteraemia [None]

NARRATIVE: CASE EVENT DATE: 20131118
